FAERS Safety Report 13506152 (Version 1)
Quarter: 2017Q2

REPORT INFORMATION
  Report Type: Spontaneous
  Country: US (occurrence: US)
  Receive Date: 20170502
  Receipt Date: 20170502
  Transmission Date: 20170830
  Serious: Yes (Hospitalization)
  Sender: FDA-Public Use
  Company Number: US-ROCHE-1219838

PATIENT
  Sex: Male

DRUGS (2)
  1. AVASTIN [Suspect]
     Active Substance: BEVACIZUMAB
     Indication: NON-SMALL CELL LUNG CANCER
     Route: 065
     Dates: start: 2008
  2. AVASTIN [Suspect]
     Active Substance: BEVACIZUMAB
     Indication: ANGIOSARCOMA

REACTIONS (2)
  - Pneumonia necrotising [Recovered/Resolved]
  - Proteinuria [Not Recovered/Not Resolved]
